FAERS Safety Report 12084166 (Version 1)
Quarter: 2016Q1

REPORT INFORMATION
  Report Type: Spontaneous
  Country: US (occurrence: US)
  Receive Date: 20160217
  Receipt Date: 20160217
  Transmission Date: 20160526
  Serious: No
  Sender: FDA-Public Use
  Company Number: US-BAYER-2016-031014

PATIENT
  Age: 80 Year
  Sex: Female
  Weight: 55.78 kg

DRUGS (1)
  1. MIRALAX [Suspect]
     Active Substance: POLYETHYLENE GLYCOL 3350
     Indication: CONSTIPATION
     Dosage: 2 OR 3 TIMES A WEEK
     Route: 048

REACTIONS (1)
  - Product use issue [None]
